FAERS Safety Report 13906452 (Version 1)
Quarter: 2017Q3

REPORT INFORMATION
  Report Type: Report from Study
  Country: US (occurrence: US)
  Receive Date: 20170825
  Receipt Date: 20170825
  Transmission Date: 20171127
  Serious: Yes (Hospitalization, Other)
  Sender: FDA-Public Use
  Company Number: US-BIOGEN-2017BI00449364

PATIENT
  Age: 43 Year
  Sex: Female

DRUGS (1)
  1. TYSABRI [Suspect]
     Active Substance: NATALIZUMAB
     Indication: MULTIPLE SCLEROSIS
     Route: 065
     Dates: start: 20100127, end: 20170712

REACTIONS (8)
  - Pain [Recovered/Resolved]
  - Cardiac arrest [Recovered/Resolved]
  - Multiple sclerosis [Recovered/Resolved]
  - Coma [Recovered/Resolved]
  - Multiple sclerosis relapse [Recovered/Resolved]
  - Rash [Recovered/Resolved]
  - CSF test abnormal [Unknown]
  - Cerebral atrophy [Not Recovered/Not Resolved]

NARRATIVE: CASE EVENT DATE: 20150821
